FAERS Safety Report 9758718 (Version 1)
Quarter: 2013Q4

REPORT INFORMATION
  Report Type: Spontaneous
  Country: US (occurrence: None)
  Receive Date: 20131213
  Receipt Date: 20131213
  Transmission Date: 20140711
  Serious: Yes (Other)
  Sender: FDA-Public Use
  Company Number: None

PATIENT
  Age: 47 Year
  Sex: Male
  Weight: 79 kg

DRUGS (22)
  1. COLY-MYCIN M [Suspect]
     Indication: DECUBITUS ULCER
     Dosage: 5 MG/KG X 1, THEN 2.5 MG/KG ?EVERY 12 HOURS?INTRAVENOUS
     Route: 042
     Dates: start: 20131205, end: 20131206
  2. OXANDROLONE [Concomitant]
  3. LIDODERM PATCH [Concomitant]
  4. TIZANIDINE [Concomitant]
  5. OMEPRAZOLE [Concomitant]
  6. MULTIVITAMIN [Concomitant]
  7. MELOXICAM [Concomitant]
  8. LORATADINE [Concomitant]
  9. LEVOTHYROXINE [Concomitant]
  10. MUCINEX [Concomitant]
  11. FOLIC ACID [Concomitant]
  12. FLUTICASONE [Concomitant]
  13. FERROUS GLUCONATE [Concomitant]
  14. CYANCOBALAMIN [Concomitant]
  15. ASCORBIC ACID [Concomitant]
  16. ALBUTEROL [Concomitant]
  17. HYDROMORPHONE [Concomitant]
  18. HYDROCODONE/APAP [Concomitant]
  19. SORE THROAT LOZENGE [Concomitant]
  20. APAP [Concomitant]
  21. ARTIFICIAL TEARS [Concomitant]
  22. CEFTAZIDIME [Concomitant]

REACTIONS (1)
  - Skin discolouration [None]
